FAERS Safety Report 6122878-6 (Version None)
Quarter: 2009Q1

REPORT INFORMATION
  Report Type: 
  Country: None (occurrence: None)
  Receive Date: 20090318
  Receipt Date: 20080811
  Transmission Date: 20090719
  Serious: No
  Sender: FDA-Public Use
  Company Number: US-AMGEN-KDL300708

PATIENT
  Sex: Female

DRUGS (4)
  1. NEUPOGEN [Suspect]
     Indication: CHEMOTHERAPY
     Dates: start: 20080617
  2. NEULASTA [Suspect]
     Indication: CHEMOTHERAPY
     Dates: start: 20080714, end: 20080714
  3. IFOSFAMIDE [Concomitant]
  4. CISPLATIN [Concomitant]

REACTIONS (5)
  - BONE PAIN [None]
  - HAEMOGLOBIN DECREASED [None]
  - NAUSEA [None]
  - NEUTROPHIL COUNT DECREASED [None]
  - WHITE BLOOD CELL COUNT DECREASED [None]
